FAERS Safety Report 19855750 (Version 1)
Quarter: 2021Q3

REPORT INFORMATION
  Report Type: Spontaneous
  Country: US (occurrence: US)
  Receive Date: 20210920
  Receipt Date: 20210920
  Transmission Date: 20211014
  Serious: No
  Sender: FDA-Public Use
  Company Number: None

PATIENT
  Age: 16 Year
  Sex: Male
  Weight: 58.5 kg

DRUGS (1)
  1. TRIAMCINOLONE ACETONIDE OINTMENT USP, 0.1% [Suspect]
     Active Substance: TRIAMCINOLONE ACETONIDE
     Indication: ECZEMA
     Dosage: ?          QUANTITY:1 1 LB. /16 OZ.;?
     Route: 061

REACTIONS (9)
  - Infection [None]
  - Skin weeping [None]
  - Muscle twitching [None]
  - Loss of personal independence in daily activities [None]
  - Insomnia [None]
  - Steroid withdrawal syndrome [None]
  - Weight decreased [None]
  - Therapeutic product effect decreased [None]
  - Pain [None]

NARRATIVE: CASE EVENT DATE: 20210703
